FAERS Safety Report 8615780-9 (Version None)
Quarter: 2012Q3

REPORT INFORMATION
  Report Type: 
  Country: None (occurrence: None)
  Receive Date: 20120823
  Receipt Date: 20120816
  Transmission Date: 20120928
  Serious: Yes (Hospitalization, Other)
  Sender: FDA-Public Use
  Company Number: AU-PFIZER INC-2012200037

PATIENT
  Sex: Female

DRUGS (1)
  1. GLIPIZIDE [Suspect]
     Dosage: UNK

REACTIONS (2)
  - CONSTIPATION [None]
  - ABDOMINAL PAIN UPPER [None]
